FAERS Safety Report 7570276-0 (Version None)
Quarter: 2011Q2

REPORT INFORMATION
  Report Type: 
  Country: None (occurrence: None)
  Receive Date: 20110620
  Receipt Date: 20110610
  Transmission Date: 20111010
  Serious: Yes (Hospitalization)
  Sender: FDA-Public Use
  Company Number: UTC-007858

PATIENT
  Age: 83 Year
  Sex: Male
  Weight: 68 kg

DRUGS (7)
  1. TRACLEER [Concomitant]
  2. TYVASO [Suspect]
     Indication: PULMONARY ARTERIAL HYPERTENSION
     Dosage: 216 MCG (54 MCG,4 IN 1 D),INHALATION
     Route: 055
     Dates: start: 20090624
  3. REVATIO [Concomitant]
  4. DIGOXIN [Concomitant]
  5. DIURETICS (DIURETICS) [Concomitant]
  6. COUMADIN [Concomitant]
  7. DILTIAZEM [Concomitant]

REACTIONS (3)
  - FLUID OVERLOAD [None]
  - HAEMOGLOBIN DECREASED [None]
  - DYSPNOEA [None]
